FAERS Safety Report 16598896 (Version 8)
Quarter: 2022Q1

REPORT INFORMATION
  Report Type: Spontaneous
  Country: GB (occurrence: None)
  Receive Date: 20190719
  Receipt Date: 20220311
  Transmission Date: 20220424
  Serious: Yes (Disabling, Other)
  Sender: FDA-Public Use
  Company Number: 2019SF00223

PATIENT
  Age: 55 Year
  Sex: Male
  Weight: 63.5 kg

DRUGS (25)
  1. OMEPRAZOLE [Suspect]
     Active Substance: OMEPRAZOLE
     Indication: Gastrooesophageal reflux disease
     Dosage: 20 MG, QD
     Route: 048
     Dates: start: 2019
  2. OMEPRAZOLE [Suspect]
     Active Substance: OMEPRAZOLE
     Indication: Duodenal ulcer
     Dosage: 20 MG, QD
     Route: 048
     Dates: start: 2019
  3. OMEPRAZOLE [Suspect]
     Active Substance: OMEPRAZOLE
     Indication: Hiatus hernia
     Dosage: 20 MG, QD
     Route: 048
     Dates: start: 2019
  4. OMEPRAZOLE [Suspect]
     Active Substance: OMEPRAZOLE
     Indication: Gastrooesophageal reflux disease
     Dosage: 20 MG, QD
     Route: 048
     Dates: start: 201812
  5. OMEPRAZOLE [Suspect]
     Active Substance: OMEPRAZOLE
     Indication: Duodenal ulcer
     Dosage: 20 MG, QD
     Route: 048
     Dates: start: 201812
  6. OMEPRAZOLE [Suspect]
     Active Substance: OMEPRAZOLE
     Indication: Hiatus hernia
     Dosage: 20 MG, QD
     Route: 048
     Dates: start: 201812
  7. OMEPRAZOLE [Suspect]
     Active Substance: OMEPRAZOLE
     Indication: Gastrooesophageal reflux disease
     Dosage: 20 MG, QD
     Route: 048
     Dates: start: 2002, end: 2017
  8. OMEPRAZOLE [Suspect]
     Active Substance: OMEPRAZOLE
     Indication: Duodenal ulcer
     Dosage: 20 MG, QD
     Route: 048
     Dates: start: 2002, end: 2017
  9. OMEPRAZOLE [Suspect]
     Active Substance: OMEPRAZOLE
     Indication: Hiatus hernia
     Dosage: 20 MG, QD
     Route: 048
     Dates: start: 2002, end: 2017
  10. OMEPRAZOLE [Suspect]
     Active Substance: OMEPRAZOLE
     Indication: Gastrooesophageal reflux disease
     Dosage: 1 DF, QD
     Route: 048
  11. OMEPRAZOLE [Suspect]
     Active Substance: OMEPRAZOLE
     Indication: Duodenal ulcer
     Dosage: 1 DF, QD
     Route: 048
  12. OMEPRAZOLE [Suspect]
     Active Substance: OMEPRAZOLE
     Indication: Hiatus hernia
     Dosage: 1 DF, QD
     Route: 048
  13. OMEPRAZOLE [Suspect]
     Active Substance: OMEPRAZOLE
     Indication: Gastrooesophageal reflux disease
     Dosage: 40 MG, QD
     Route: 048
     Dates: start: 1992, end: 201802
  14. OMEPRAZOLE [Suspect]
     Active Substance: OMEPRAZOLE
     Indication: Duodenal ulcer
     Dosage: 40 MG, QD
     Route: 048
     Dates: start: 1992, end: 201802
  15. OMEPRAZOLE [Suspect]
     Active Substance: OMEPRAZOLE
     Indication: Hiatus hernia
     Dosage: 40 MG, QD
     Route: 048
     Dates: start: 1992, end: 201802
  16. HYDROXOCOBALAMIN [Suspect]
     Active Substance: HYDROXOCOBALAMIN
     Indication: Product used for unknown indication
     Dosage: UNK (STANDARD LOADING DOSE)
     Route: 030
     Dates: start: 201901
  17. HYDROXOCOBALAMIN [Suspect]
     Active Substance: HYDROXOCOBALAMIN
     Indication: Product used for unknown indication
     Dosage: UNK (TOP UP DOSE)
     Route: 030
     Dates: start: 201904
  18. LEUCOVORIN CALCIUM [Suspect]
     Active Substance: LEUCOVORIN CALCIUM
     Indication: Cardiovascular disorder
     Dosage: 800 MG, QD
     Route: 065
  19. ROPINIROLE [Concomitant]
     Active Substance: ROPINIROLE
     Indication: Periodic limb movement disorder
     Dosage: 2 MG, TID
     Route: 065
     Dates: start: 2002
  20. ASPIRIN [Concomitant]
     Active Substance: ASPIRIN
     Indication: Cardiovascular event prophylaxis
     Dosage: 75 MG, QD
     Route: 065
     Dates: start: 2001
  21. ADCAL [Concomitant]
     Indication: Osteoporosis
     Dosage: 1 DF, QD
     Dates: start: 201802
  22. FOLIC ACID [Concomitant]
     Active Substance: FOLIC ACID
     Indication: Cardiovascular event prophylaxis
     Dosage: 800 UG, QD800UG/INHAL DAILY
     Dates: start: 2004
  23. FOLIC ACID [Concomitant]
     Active Substance: FOLIC ACID
     Indication: Cardiovascular event prophylaxis
     Route: 065
     Dates: start: 2004
  24. RISEDRONATE SODIUM [Concomitant]
     Active Substance: RISEDRONATE SODIUM
     Indication: Osteoporosis
     Dosage: 35 MG, QW
     Dates: start: 201802
  25. SIMVASTATIN [Concomitant]
     Active Substance: SIMVASTATIN
     Indication: Cardiovascular event prophylaxis
     Dosage: 40 MG, QD
     Dates: start: 2004

REACTIONS (22)
  - Fall [Unknown]
  - Ulna fracture [Unknown]
  - Spinal compression fracture [Unknown]
  - Neuropathy vitamin B12 deficiency [Not Recovered/Not Resolved]
  - Incorrect product administration duration [Unknown]
  - Malabsorption [Not Recovered/Not Resolved]
  - Osteoporosis [Not Recovered/Not Resolved]
  - Neuropathy peripheral [Not Recovered/Not Resolved]
  - Peripheral sensorimotor neuropathy [Unknown]
  - Restless legs syndrome [Not Recovered/Not Resolved]
  - Cardiovascular disorder [Unknown]
  - Periodic limb movement disorder [Unknown]
  - Angina pectoris [Unknown]
  - Vitamin B12 deficiency [Unknown]
  - Somnolence [Unknown]
  - Exercise tolerance decreased [Unknown]
  - Hypoaesthesia [Unknown]
  - Balance disorder [Unknown]
  - Sensory loss [Unknown]
  - Asthenia [Unknown]
  - Hand deformity [Unknown]
  - Treatment failure [Unknown]

NARRATIVE: CASE EVENT DATE: 19920101
